FAERS Safety Report 15250575 (Version 4)
Quarter: 2018Q4

REPORT INFORMATION
  Report Type: Spontaneous
  Country: US (occurrence: US)
  Receive Date: 20180807
  Receipt Date: 20181211
  Transmission Date: 20190204
  Serious: No
  Sender: FDA-Public Use
  Company Number: US-PFIZER INC-2018063962

PATIENT
  Age: 60 Year
  Sex: Female
  Weight: 68.4 kg

DRUGS (2)
  1. EFFEXOR XR [Suspect]
     Active Substance: VENLAFAXINE HYDROCHLORIDE
     Dosage: 300 MG, DAILY(QTY 60 / DAY SUPPLY 30)
  2. EFFEXOR XR [Suspect]
     Active Substance: VENLAFAXINE HYDROCHLORIDE
     Dosage: 300 MG, DAILY(QTY 54/DAYS SUPPLY 27)

REACTIONS (2)
  - Prescribed overdose [Unknown]
  - Irritability [Unknown]
